FAERS Safety Report 8465980 (Version 3)
Quarter: 2012Q4

REPORT INFORMATION
  Report Type: 
  Country: US (occurrence: US)
  Receive Date: 20120319
  Receipt Date: 20121102
  Transmission Date: 20130627
  Serious: Yes (Hospitalization, Other)
  Sender: FDA-Public Use
  Company Number: US-009507513-1203USA01938

PATIENT

DRUGS (8)
  1. VITAMINS (UNSPECIFIED) [Concomitant]
     Dosage: UNK, qd
  2. GARLIC [Concomitant]
     Dosage: UNK, qd
  3. IRON (UNSPECIFIED) [Concomitant]
     Dosage: UNK, qd
  4. OMEGA-3 MARINE TRIGLYCERIDES [Concomitant]
     Dosage: UNK, qd
  5. CYANOCOBALAMIN [Concomitant]
     Dosage: UNK, qd
  6. FOSAMAX [Suspect]
     Indication: OSTEOPOROSIS
     Dosage: 10 mg, UNK
     Route: 048
     Dates: start: 2000, end: 200107
  7. FOSAMAX [Suspect]
     Dosage: 70 mg, qw
     Dates: start: 200108, end: 2010
  8. ALENDRONATE SODIUM [Suspect]
     Indication: OSTEOPOROSIS
     Dosage: 70 mg, UNK
     Dates: start: 200803, end: 2010

REACTIONS (25)
  - Femur fracture [Recovered/Resolved with Sequelae]
  - Femur fracture [Unknown]
  - Cholecystectomy [Unknown]
  - Cardiac failure congestive [Unknown]
  - Dehydration [Recovered/Resolved]
  - Hyponatraemia [Recovered/Resolved]
  - Fall [Unknown]
  - Pneumonia [Unknown]
  - Osteoarthritis [Unknown]
  - Chronic obstructive pulmonary disease [Unknown]
  - Anxiety [Unknown]
  - Coronary artery disease [Unknown]
  - Bundle branch block [Unknown]
  - Delirium [Recovered/Resolved]
  - Anaemia [Not Recovered/Not Resolved]
  - Gastrooesophageal reflux disease [Unknown]
  - Enterococcal infection [Unknown]
  - Oesophageal candidiasis [Unknown]
  - Hypoaesthesia [Unknown]
  - Pain in extremity [Unknown]
  - Arthritis [Unknown]
  - Thyroid disorder [Unknown]
  - Cholecystitis chronic [Unknown]
  - Bile duct stone [Not Recovered/Not Resolved]
  - Cardiomegaly [Unknown]
